FAERS Safety Report 10232678 (Version 2)
Quarter: 2014Q3

REPORT INFORMATION
  Report Type: Report from Study
  Country: BR (occurrence: BR)
  Receive Date: 20140612
  Receipt Date: 20140905
  Transmission Date: 20150326
  Serious: No
  Sender: FDA-Public Use
  Company Number: PHHY2014BR070758

PATIENT
  Sex: Female
  Weight: 66 kg

DRUGS (9)
  1. FORASEQ [Concomitant]
     Active Substance: BUDESONIDE\FORMOTEROL FUMARATE
     Indication: ASTHMA
     Dosage: 2 DF, QD
     Route: 055
  2. CALTRATE [Suspect]
     Active Substance: CALCIUM CARBONATE
     Indication: OSTEOPENIA
     Dosage: 2 DF, DAILY
     Route: 048
  3. VITAMIN D [Suspect]
     Active Substance: CHOLECALCIFEROL
     Indication: OSTEOPENIA
     Dosage: 1 DF, DAILY
     Route: 048
  4. GALVUS MET [Suspect]
     Active Substance: METFORMIN HYDROCHLORIDE\VILDAGLIPTIN
     Dosage: 1 DF, BID
     Route: 048
  5. GALVUS MET [Suspect]
     Active Substance: METFORMIN HYDROCHLORIDE\VILDAGLIPTIN
     Indication: DIABETES MELLITUS
     Dosage: 1.5 DF, QD
     Route: 048
  6. ANASTROZOL [Suspect]
     Active Substance: ANASTROZOLE
     Indication: BREAST CANCER FEMALE
     Dosage: 1 DF, QD
     Route: 065
  7. BONVIVA [Suspect]
     Active Substance: IBANDRONATE SODIUM
     Indication: OSTEOPENIA
     Dosage: UNK OT, UNK
     Route: 065
  8. FORASEQ [Concomitant]
     Active Substance: BUDESONIDE\FORMOTEROL FUMARATE
     Dosage: 3 DF (IF SHE HAD A COLD OR WAS TOO CONGESTED)
     Route: 055
  9. GLIFAGE [Concomitant]
     Active Substance: METFORMIN HYDROCHLORIDE
     Indication: DIABETES MELLITUS
     Dosage: 2 DF, QHS
     Route: 048

REACTIONS (4)
  - Osteoporosis [Unknown]
  - Blood glucose abnormal [Unknown]
  - Osteopenia [Unknown]
  - Pain [Unknown]
